FAERS Safety Report 4975351-2 (Version None)
Quarter: 2006Q2

REPORT INFORMATION
  Report Type: 
  Country: None (occurrence: None)
  Receive Date: 20060418
  Receipt Date: 20051214
  Transmission Date: 20061013
  Serious: Yes (Death, Hospitalization, Other)
  Sender: FDA-Public Use
  Company Number: US-MERCK-0512USA02406

PATIENT
  Age: 85 Year
  Sex: Male
  Weight: 68 kg

DRUGS (3)
  1. VIOXX [Suspect]
     Indication: ARTHRITIS
     Route: 048
     Dates: start: 20031111, end: 20040101
  2. TYLENOL (CAPLET) [Concomitant]
     Route: 065
  3. ADVIL [Concomitant]
     Route: 065

REACTIONS (5)
  - ADVERSE EVENT [None]
  - CEREBROVASCULAR ACCIDENT [None]
  - DEATH [None]
  - HAEMATEMESIS [None]
  - PYREXIA [None]
